FAERS Safety Report 12318807 (Version 1)
Quarter: 2016Q2

REPORT INFORMATION
  Report Type: Spontaneous
  Country: US (occurrence: US)
  Receive Date: 20160429
  Receipt Date: 20160429
  Transmission Date: 20160815
  Serious: Yes (Life-Threatening)
  Sender: FDA-Public Use
  Company Number: US-BAYER-2016-078513

PATIENT
  Sex: Male

DRUGS (1)
  1. GADAVIST [Suspect]
     Active Substance: GADOBUTROL
     Indication: NUCLEAR MAGNETIC RESONANCE IMAGING
     Dosage: UNK
     Dates: start: 20160422, end: 20160422

REACTIONS (1)
  - Cardio-respiratory arrest [Unknown]

NARRATIVE: CASE EVENT DATE: 20160422
